FAERS Safety Report 7721304-0 (Version None)
Quarter: 2011Q3

REPORT INFORMATION
  Report Type: 
  Country: None (occurrence: None)
  Receive Date: 20110831
  Receipt Date: 20110824
  Transmission Date: 20111222
  Serious: Yes (Other)
  Sender: FDA-Public Use
  Company Number: PHHY2011CA73994

PATIENT
  Sex: Female

DRUGS (6)
  1. SANDOSTATIN LAR [Suspect]
     Indication: SHORT-BOWEL SYNDROME
     Dosage: 30 MG EVERY 3 WEEKS
     Route: 030
     Dates: start: 20080101
  2. SANDOSTATIN [Suspect]
     Indication: SHORT-BOWEL SYNDROME
     Dosage: UNK
     Route: 058
  3. CELEBREX [Concomitant]
  4. PERCOCET [Concomitant]
  5. VITAMIN B-12 [Concomitant]
  6. PRILOSEC [Concomitant]

REACTIONS (1)
  - VULVAL CANCER STAGE I [None]
